FAERS Safety Report 7765725-9 (Version None)
Quarter: 2011Q3

REPORT INFORMATION
  Report Type: 
  Country: None (occurrence: None)
  Receive Date: 20110921
  Receipt Date: 20110913
  Transmission Date: 20111222
  Serious: Yes (Other)
  Sender: FDA-Public Use
  Company Number: PHHY2011GB81556

PATIENT
  Age: 44 Year
  Sex: Female

DRUGS (1)
  1. PYRIDOSTIGMINE BROMIDE [Suspect]
     Indication: MYASTHENIC SYNDROME
     Dosage: 60 MG, TID

REACTIONS (2)
  - FATIGUE [None]
  - DRUG INEFFECTIVE [None]
